FAERS Safety Report 8454062-5 (Version None)
Quarter: 2012Q2

REPORT INFORMATION
  Report Type: 
  Country: None (occurrence: None)
  Receive Date: 20120620
  Receipt Date: 20120611
  Transmission Date: 20120825
  Serious: Yes (Death, Hospitalization)
  Sender: FDA-Public Use
  Company Number: US-TEVA-342544USA

PATIENT
  Age: 72 Year
  Sex: Male
  Weight: 191.6 kg

DRUGS (3)
  1. GEMTUZUMAB OZOGAMICIN [Suspect]
     Indication: ACUTE PROMYELOCYTIC LEUKAEMIA
     Dosage: 9 MG/M2
     Dates: start: 20120307
  2. TRISENOX [Suspect]
     Indication: ACUTE PROMYELOCYTIC LEUKAEMIA
     Dosage: 0.15 MG/KG
     Dates: start: 20120307, end: 20120318
  3. ATRACURIUM BESYLATE [Suspect]
     Indication: ACUTE PROMYELOCYTIC LEUKAEMIA
     Dates: start: 20120307, end: 20120318

REACTIONS (1)
  - PULMONARY HAEMORRHAGE [None]
